FAERS Safety Report 23585860 (Version 1)
Quarter: 2024Q1

REPORT INFORMATION
  Report Type: Other
  Country: US (occurrence: None)
  Receive Date: 20240301
  Receipt Date: 20240301
  Transmission Date: 20240410
  Serious: Yes (Hospitalization, Other)
  Sender: FDA-Public Use
  Company Number: US-Navinta LLC-000486

PATIENT
  Age: 1 Year
  Sex: Female

DRUGS (12)
  1. RIBAVIRIN [Suspect]
     Active Substance: RIBAVIRIN
     Indication: Neurological decompensation
     Dosage: 33 MG/KG/DOSE LOAD EVERY 8 HOURS
     Route: 042
  2. INTERFERON ALFA-2A OR INTERFERON ALFA-2B [Suspect]
     Active Substance: INTERFERON ALFA-2A OR INTERFERON ALFA-2B
     Indication: Neurological decompensation
     Dosage: 1000000 UNITS/M2 INTRATHECAL,TWICE WEEKLY
     Route: 037
  3. INOSINE PRANOBEX [Suspect]
     Active Substance: INOSINE PRANOBEX
     Indication: Neurological decompensation
     Dosage: 25 MG/KG/DOSE EVERY 6 HOURS
     Route: 048
  4. IMMUNOGLOBULIN [Concomitant]
     Indication: Hypogammaglobulinaemia
     Dosage: 400 MG/KG
     Route: 042
  5. METHYLPREDNISOLONE [Concomitant]
     Active Substance: METHYLPREDNISOLONE
     Indication: Drug eruption
     Dosage: 0.5 MG/KG EVERY 6 HOURS
  6. RIBAVIRIN [Suspect]
     Active Substance: RIBAVIRIN
     Indication: Neurological decompensation
     Dosage: 33 MG/KG/DOSE LOAD EVERY 6 HOURS FOR 16 DOSES
     Route: 042
  7. RIBAVIRIN [Suspect]
     Active Substance: RIBAVIRIN
     Indication: Neurological decompensation
     Dosage: 33 MG/KG/DOSE LOAD
     Route: 042
  8. INTERFERON ALFA-2A OR INTERFERON ALFA-2B [Suspect]
     Active Substance: INTERFERON ALFA-2A OR INTERFERON ALFA-2B
     Indication: Neurological decompensation
     Dosage: 500000 UNITS/M2 INTRATHECAL
     Route: 037
  9. INTERFERON ALFA-2A OR INTERFERON ALFA-2B [Suspect]
     Active Substance: INTERFERON ALFA-2A OR INTERFERON ALFA-2B
     Indication: Neurological decompensation
     Dosage: 400000 UNITS/M2 INTRATHECAL
     Route: 037
  10. INTERFERON ALFA-2A OR INTERFERON ALFA-2B [Suspect]
     Active Substance: INTERFERON ALFA-2A OR INTERFERON ALFA-2B
     Indication: Neurological decompensation
     Dosage: 300000 UNITS/M2 INTRATHECAL
     Route: 037
  11. INTERFERON ALFA-2A OR INTERFERON ALFA-2B [Suspect]
     Active Substance: INTERFERON ALFA-2A OR INTERFERON ALFA-2B
     Indication: Neurological decompensation
     Dosage: 200000 UNITS/M2 INTRATHECAL
     Route: 037
  12. INTERFERON ALFA-2A OR INTERFERON ALFA-2B [Suspect]
     Active Substance: INTERFERON ALFA-2A OR INTERFERON ALFA-2B
     Indication: Neurological decompensation
     Dosage: 100000 UNITS/M2 INTRATHECAL
     Route: 037

REACTIONS (1)
  - Neutropenia [Unknown]
